FAERS Safety Report 20035566 (Version 6)
Quarter: 2022Q1

REPORT INFORMATION
  Report Type: Report from Study
  Country: RU (occurrence: RU)
  Receive Date: 20211104
  Receipt Date: 20220202
  Transmission Date: 20220423
  Serious: Yes (Death, Life-Threatening)
  Sender: FDA-Public Use
  Company Number: RU-ABBVIE-21P-251-4141959-00

PATIENT
  Age: 57 Year
  Sex: Male

DRUGS (26)
  1. VENETOCLAX [Suspect]
     Active Substance: VENETOCLAX
     Indication: Plasma cell myeloma
     Route: 048
     Dates: start: 20211011, end: 20211019
  2. VENETOCLAX [Suspect]
     Active Substance: VENETOCLAX
     Route: 048
     Dates: start: 20211022, end: 20211026
  3. DEXAMETHASONE [Suspect]
     Active Substance: DEXAMETHASONE
     Indication: Plasma cell myeloma
     Dosage: DAY 1, 8, 15 AND 22 OF EACH 28 DAY CYCLE
     Route: 048
     Dates: start: 20211011, end: 20211025
  4. APIDRA [Concomitant]
     Active Substance: INSULIN GLULISINE
     Indication: Type 2 diabetes mellitus
     Dosage: BY THE LEVEL OF GLYCEMIA
     Route: 058
     Dates: start: 201902
  5. TOUJEO [Concomitant]
     Active Substance: INSULIN GLARGINE
     Indication: Type 2 diabetes mellitus
     Dosage: BY THE LEVEL OF GLYCEMIA
     Route: 058
     Dates: start: 201902
  6. BISOPROLOL FUMARATE [Concomitant]
     Active Substance: BISOPROLOL FUMARATE
     Indication: Hypertension
     Route: 048
     Dates: start: 2018, end: 20211006
  7. BISOPROLOL FUMARATE [Concomitant]
     Active Substance: BISOPROLOL FUMARATE
     Route: 048
     Dates: start: 20211007
  8. SPIRONOLACTONE [Concomitant]
     Active Substance: SPIRONOLACTONE
     Indication: Antibiotic prophylaxis
     Route: 048
     Dates: start: 2018, end: 20211019
  9. ALLOPURINOL [Concomitant]
     Active Substance: ALLOPURINOL
     Indication: Prophylaxis
     Route: 048
     Dates: start: 20211006, end: 20211028
  10. SODIUM CHLORIDE [Concomitant]
     Active Substance: SODIUM CHLORIDE
     Indication: Prophylaxis
     Route: 048
     Dates: start: 20211006, end: 20211028
  11. METRONIDAZOLE [Concomitant]
     Active Substance: METRONIDAZOLE
     Indication: Hypertension
     Route: 048
     Dates: start: 20211013
  12. VANCOMYCIN [Concomitant]
     Active Substance: VANCOMYCIN
     Indication: Diarrhoea
     Route: 048
     Dates: start: 20211018
  13. PIPERACILLIN SODIUM\TAZOBACTAM SODIUM [Concomitant]
     Active Substance: PIPERACILLIN SODIUM\TAZOBACTAM SODIUM
     Indication: Antibiotic prophylaxis
     Dates: start: 20211024, end: 20211026
  14. FILGRASTIM [Concomitant]
     Active Substance: FILGRASTIM
     Indication: Febrile neutropenia
     Route: 058
     Dates: start: 20211007, end: 20211008
  15. PHENZITAT [Concomitant]
     Indication: Insomnia
     Route: 048
     Dates: start: 20211011, end: 20211012
  16. ATARAX [Concomitant]
     Active Substance: HYDROXYZINE HYDROCHLORIDE
     Indication: Insomnia
     Route: 048
     Dates: start: 20211013, end: 20211014
  17. DOXYLAMINE [Concomitant]
     Active Substance: DOXYLAMINE
     Indication: Anxiety disorder
     Route: 048
     Dates: start: 20211015, end: 20211027
  18. TRANEXAMIC ACID [Concomitant]
     Active Substance: TRANEXAMIC ACID
     Indication: Epistaxis
     Route: 042
     Dates: start: 20211020
  19. TRANEXAMIC ACID [Concomitant]
     Active Substance: TRANEXAMIC ACID
     Indication: Gastric haemorrhage
  20. NUTRICOMP STANDARD [Concomitant]
     Indication: Prophylaxis
     Dosage: DURING 24 HOURS
     Route: 048
     Dates: start: 20211026, end: 20211030
  21. ERYTHROPOIETIN [Concomitant]
     Active Substance: ERYTHROPOIETIN
     Indication: Anaemia
     Route: 058
     Dates: start: 20211015, end: 20211029
  22. ACYCLOVIR [Concomitant]
     Active Substance: ACYCLOVIR
     Indication: Antibiotic prophylaxis
     Route: 048
     Dates: start: 20211006, end: 20211028
  23. ACYCLOVIR [Concomitant]
     Active Substance: ACYCLOVIR
     Route: 048
     Dates: start: 20201028
  24. BISEPTOL [Concomitant]
     Active Substance: SULFAMETHOXAZOLE\TRIMETHOPRIM
     Indication: Antibiotic prophylaxis
     Route: 048
     Dates: start: 201903, end: 20211027
  25. BISEPTOL [Concomitant]
     Active Substance: SULFAMETHOXAZOLE\TRIMETHOPRIM
     Route: 048
     Dates: start: 20211028
  26. OMEPRAZOLE [Concomitant]
     Active Substance: OMEPRAZOLE
     Indication: Haemorrhage prophylaxis
     Route: 042
     Dates: start: 20211023, end: 20211030

REACTIONS (2)
  - Septic shock [Fatal]
  - Pneumonia [Recovered/Resolved]

NARRATIVE: CASE EVENT DATE: 20211028
